FAERS Safety Report 6586084-3 (Version None)
Quarter: 2010Q1

REPORT INFORMATION
  Report Type: 
  Country: None (occurrence: None)
  Receive Date: 20100216
  Receipt Date: 20100216
  Transmission Date: 20100710
  Serious: Yes (Hospitalization)
  Sender: FDA-Public Use
  Company Number: None

PATIENT
  Age: 55 Year
  Sex: Female
  Weight: 80 kg

DRUGS (1)
  1. PACLITAXEL [Suspect]
     Indication: NON-SMALL CELL LUNG CANCER
     Dosage: 4.62 MG QWEEK IV
     Route: 042
     Dates: start: 20081028, end: 20081028

REACTIONS (3)
  - BONE PAIN [None]
  - HYPOTENSION [None]
  - RESPIRATORY DEPRESSION [None]
